FAERS Safety Report 14921186 (Version 5)
Quarter: 2018Q4

REPORT INFORMATION
  Report Type: Report from Study
  Country: BR (occurrence: BR)
  Receive Date: 20180521
  Receipt Date: 20181115
  Transmission Date: 20190204
  Serious: Yes (Life-Threatening, Hospitalization, Other)
  Sender: FDA-Public Use
  Company Number: BR-ALEXION PHARMACEUTICALS INC.-A201803868

PATIENT
  Age: 21 Year
  Sex: Female
  Weight: 61.4 kg

DRUGS (2)
  1. STRENSIQ [Suspect]
     Active Substance: ASFOTASE ALFA
     Indication: HYPOPHOSPHATASIA
     Dosage: 80 MG/ 0.8 ML, TIW
     Route: 058
     Dates: start: 20171211
  2. STRENSIQ [Suspect]
     Active Substance: ASFOTASE ALFA
     Dosage: 0.8 ML, TIW
     Route: 058
     Dates: start: 20171211

REACTIONS (33)
  - Hypoaesthesia [Recovered/Resolved]
  - Oxygen saturation decreased [Recovered/Resolved]
  - Injection site haemorrhage [Recovered/Resolved]
  - Injection site pain [Unknown]
  - Dyspnoea [Recovered/Resolved]
  - Feeling hot [Recovered/Resolved]
  - Blood pressure increased [Recovered/Resolved]
  - Alanine aminotransferase increased [Unknown]
  - Bronchospasm [Recovered/Resolved]
  - Musculoskeletal stiffness [Unknown]
  - Malaise [Recovered/Resolved]
  - Dyskinesia [Unknown]
  - Arthralgia [Unknown]
  - Fall [Recovered/Resolved]
  - Blood alkaline phosphatase increased [Recovered/Resolved]
  - Aspartate aminotransferase increased [Unknown]
  - Loss of consciousness [Recovered/Resolved]
  - Muscle spasms [Recovering/Resolving]
  - Tremor [Unknown]
  - Lethargy [Unknown]
  - Liver function test abnormal [Recovered/Resolved]
  - Hypersensitivity [Unknown]
  - Petechiae [Unknown]
  - Headache [Unknown]
  - Anaphylactic shock [Recovered/Resolved]
  - Seizure [Recovered/Resolved]
  - Respiration abnormal [Recovered/Resolved]
  - Back pain [Unknown]
  - Blood gases abnormal [Unknown]
  - Emotional disorder [Not Recovered/Not Resolved]
  - Heart rate increased [Recovered/Resolved]
  - Fatigue [Unknown]
  - Nausea [Unknown]

NARRATIVE: CASE EVENT DATE: 201803
